FAERS Safety Report 8448813-3 (Version None)
Quarter: 2012Q2

REPORT INFORMATION
  Report Type: 
  Country: None (occurrence: None)
  Receive Date: 20120619
  Receipt Date: 20120614
  Transmission Date: 20120825
  Serious: Yes (Other)
  Sender: FDA-Public Use
  Company Number: ES-ABBOTT-11P-144-0717187-00

PATIENT
  Sex: Male
  Weight: 77 kg

DRUGS (5)
  1. HUMIRA [Suspect]
     Indication: PSORIASIS
     Dosage: INDUCTION DOSE
     Route: 058
     Dates: start: 20100727, end: 20100727
  2. ENALAPRIL MALEATE [Concomitant]
     Indication: HYPERTENSION
     Route: 048
     Dates: start: 20101001
  3. HUMIRA [Suspect]
     Dates: end: 20110322
  4. SERTRALINE HYDROCHLORIDE [Concomitant]
     Indication: DEPRESSION
     Route: 048
     Dates: start: 20101216
  5. HUMIRA [Suspect]
     Route: 058
     Dates: start: 20100803, end: 20110303

REACTIONS (4)
  - SPLENOMEGALY [None]
  - PULMONARY SARCOIDOSIS [None]
  - HAEMANGIOMA OF LIVER [None]
  - COUGH [None]
